FAERS Safety Report 15567312 (Version 4)
Quarter: 2019Q2

REPORT INFORMATION
  Report Type: Report from Study
  Country: TR (occurrence: TR)
  Receive Date: 20181030
  Receipt Date: 20190419
  Transmission Date: 20190711
  Serious: Yes (Death, Life-Threatening, Hospitalization)
  Sender: FDA-Public Use
  Company Number: TR-ELI_LILLY_AND_COMPANY-TR201810012096

PATIENT
  Age: 37 Year
  Sex: Male
  Weight: 60 kg

DRUGS (1)
  1. CETUXIMAB. [Suspect]
     Active Substance: CETUXIMAB
     Indication: COLON CANCER METASTATIC
     Dosage: 672 MG, WEEKLY (1/W)
     Route: 042
     Dates: start: 20181009, end: 20181009

REACTIONS (3)
  - Cardio-respiratory arrest [Fatal]
  - Acute kidney injury [Not Recovered/Not Resolved]
  - Septic shock [Not Recovered/Not Resolved]

NARRATIVE: CASE EVENT DATE: 20181012
